FAERS Safety Report 7710118-3 (Version None)
Quarter: 2011Q3

REPORT INFORMATION
  Report Type: 
  Country: None (occurrence: None)
  Receive Date: 20110825
  Receipt Date: 20110818
  Transmission Date: 20111222
  Serious: Yes (Death)
  Sender: FDA-Public Use
  Company Number: IT-CELGENEUS-083-50794-11082272

PATIENT

DRUGS (1)
  1. VIDAZA [Suspect]
     Route: 058
     Dates: end: 20110110

REACTIONS (1)
  - ACUTE MYELOID LEUKAEMIA [None]
